FAERS Safety Report 8535521-3 (Version None)
Quarter: 2012Q3

REPORT INFORMATION
  Report Type: 
  Country: None (occurrence: None)
  Receive Date: 20120725
  Receipt Date: 20120717
  Transmission Date: 20120928
  Serious: Yes (Other)
  Sender: FDA-Public Use
  Company Number: US-CELGENEUS-163-20785-12071917

PATIENT
  Sex: Male
  Weight: 66.284 kg

DRUGS (5)
  1. BLOOD PRESSURE MEDICATION [Concomitant]
     Route: 065
  2. CHOLESTEROL MEDICATION [Concomitant]
     Route: 065
  3. PAIN MEDICATION [Concomitant]
     Route: 065
  4. THALOMID [Suspect]
     Indication: MULTIPLE MYELOMA
     Dosage: 200 MILLIGRAM
     Route: 048
     Dates: start: 20110701
  5. VELCADE [Concomitant]
     Indication: MULTIPLE MYELOMA
     Route: 065

REACTIONS (1)
  - CARDIAC DISORDER [None]
